FAERS Safety Report 6413046-9 (Version None)
Quarter: 2009Q4

REPORT INFORMATION
  Report Type: 
  Country: None (occurrence: None)
  Receive Date: 20091023
  Receipt Date: 20091023
  Transmission Date: 20100525
  Serious: Yes (Other)
  Sender: FDA-Public Use
  Company Number: None

PATIENT
  Sex: Female
  Weight: 57.1532 kg

DRUGS (1)
  1. SIMVASTATIN [Suspect]
     Indication: BLOOD CHOLESTEROL
     Dosage: 1 10 MG PER DAY, QUIT ON 24TH JUNE
     Dates: start: 20090607, end: 20090624

REACTIONS (6)
  - CONTUSION [None]
  - FATIGUE [None]
  - HAIR COLOUR CHANGES [None]
  - MUSCLE HYPERTROPHY [None]
  - MYALGIA [None]
  - PRURITUS [None]
